FAERS Safety Report 18371173 (Version 2)
Quarter: 2020Q4

REPORT INFORMATION
  Report Type: Report from Study
  Country: None (occurrence: US)
  Receive Date: 20201012
  Receipt Date: 20201013
  Transmission Date: 20210114
  Serious: Yes (Hospitalization)
  Sender: FDA-Public Use
  Company Number: US-ABBVIE-20K-163-3602233-00

PATIENT
  Age: 69 Year
  Sex: Female
  Weight: 61.29 kg

DRUGS (1)
  1. CREON [Suspect]
     Active Substance: PANCRELIPASE AMYLASE\PANCRELIPASE LIPASE\PANCRELIPASE PROTEASE
     Indication: PANCREATIC FAILURE
     Dosage: 1 CAPSULE PER MEAL
     Route: 048

REACTIONS (7)
  - Asthenia [Unknown]
  - Hospitalisation [Unknown]
  - Upper limb fracture [Recovering/Resolving]
  - Wrist fracture [Recovering/Resolving]
  - Pain [Unknown]
  - Fall [Recovering/Resolving]
  - Memory impairment [Unknown]

NARRATIVE: CASE EVENT DATE: 20200928
